FAERS Safety Report 5846503-4 (Version None)
Quarter: 2008Q3

REPORT INFORMATION
  Report Type: 
  Country: None (occurrence: None)
  Receive Date: 20080815
  Receipt Date: 20080802
  Transmission Date: 20090109
  Serious: Yes (Death, Hospitalization, Other)
  Sender: FDA-Public Use
  Company Number: US-BAYER-200823963GPV

PATIENT

DRUGS (1)
  1. FLUDARABINE PHOSPHATE [Suspect]
     Indication: ACUTE LEUKAEMIA
     Route: 065

REACTIONS (12)
  - BONE MARROW FAILURE [None]
  - HEPATOTOXICITY [None]
  - INFECTION [None]
  - LACTIC ACIDOSIS [None]
  - LEUKOPENIA [None]
  - METABOLIC ACIDOSIS [None]
  - NAUSEA [None]
  - NEUROTOXICITY [None]
  - NEUTROPENIA [None]
  - PYREXIA [None]
  - RASH MACULO-PAPULAR [None]
  - VOMITING [None]
